FAERS Safety Report 5393953-9 (Version None)
Quarter: 2007Q3

REPORT INFORMATION
  Report Type: 
  Country: None (occurrence: None)
  Receive Date: 20070723
  Receipt Date: 20061129
  Transmission Date: 20080115
  Serious: No
  Sender: FDA-Public Use
  Company Number: A0629436A

PATIENT
  Sex: Female

DRUGS (7)
  1. AVANDIA [Suspect]
     Dosage: 8MG PER DAY
     Route: 048
  2. QUINAPRIL [Concomitant]
  3. ZOCOR [Concomitant]
  4. ATENOLOL [Concomitant]
  5. AMARYL [Concomitant]
  6. NORVASC [Concomitant]
  7. PROCRIT [Concomitant]

REACTIONS (2)
  - ASTHENIA [None]
  - WEIGHT INCREASED [None]
